FAERS Safety Report 8291403-6 (Version None)
Quarter: 2012Q2

REPORT INFORMATION
  Report Type: 
  Country: None (occurrence: None)
  Receive Date: 20120412
  Receipt Date: 20120402
  Transmission Date: 20120825
  Serious: Yes (Other)
  Sender: FDA-Public Use
  Company Number: 2012SP000577

PATIENT
  Sex: Male

DRUGS (8)
  1. INTRON A [Suspect]
     Indication: HEPATITIS C
     Dates: start: 19980102, end: 19981127
  2. PEG-INTRON [Suspect]
     Indication: HEPATITIS C
     Dates: start: 20120113
  3. PEG-INTRON [Suspect]
     Indication: HEPATITIS C
     Dates: start: 20010406, end: 20030404
  4. VICTRELIS [Suspect]
     Indication: HEPATITIS C
     Dates: start: 20120211
  5. PEGASYS [Suspect]
     Indication: HEPATITIS C
     Dates: start: 20090102, end: 20091127
  6. RIBAVIRIN [Suspect]
     Dates: start: 20090102, end: 20091127
  7. RIBAVIRIN [Suspect]
     Dates: start: 20010406, end: 20030404
  8. RIBAVIRIN [Suspect]
     Dates: start: 20120112

REACTIONS (12)
  - DYSGEUSIA [None]
  - ABDOMINAL PAIN UPPER [None]
  - NAUSEA [None]
  - FATIGUE [None]
  - ABDOMINAL DISTENSION [None]
  - INSOMNIA [None]
  - THYROID DISORDER [None]
  - FLATULENCE [None]
  - DYSPNOEA [None]
  - HEADACHE [None]
  - DYSPEPSIA [None]
  - HYPOTHYROIDISM [None]
